FAERS Safety Report 7670145-1 (Version None)
Quarter: 2011Q3

REPORT INFORMATION
  Report Type: 
  Country: None (occurrence: None)
  Receive Date: 20110808
  Receipt Date: 20110728
  Transmission Date: 20111222
  Serious: Yes (Other)
  Sender: FDA-Public Use
  Company Number: US-ASTRAZENECA-2011SE45512

PATIENT
  Sex: Male

DRUGS (2)
  1. VIMOVO [Suspect]
     Route: 048
  2. OMEPRAZOLE [Suspect]
     Route: 048

REACTIONS (9)
  - IGA NEPHROPATHY [None]
  - WEIGHT DECREASED [None]
  - PAIN [None]
  - INTERVERTEBRAL DISC PROTRUSION [None]
  - DRUG DOSE OMISSION [None]
  - INTERVERTEBRAL DISC DEGENERATION [None]
  - SWELLING [None]
  - LOWER LIMB FRACTURE [None]
  - MUSCULOSKELETAL DISCOMFORT [None]
